FAERS Safety Report 8866032 (Version 1)
Quarter: 2012Q4

REPORT INFORMATION
  Report Type: 
  Country: US (occurrence: US)
  Receive Date: 20121025
  Receipt Date: 20121025
  Transmission Date: 20130627
  Serious: Yes (Other)
  Sender: FDA-Public Use
  Company Number: US-ABBOTT-11P-163-0882090-00

PATIENT
  Age: 25 Year
  Sex: Female
  Weight: 86.26 kg

DRUGS (1)
  1. LUPRON DEPOT 3.75 MG [Suspect]
     Indication: ENDOMETRIOSIS
     Dosage: 3.75mg dose
     Dates: start: 20111011, end: 201111

REACTIONS (2)
  - Convulsion [Recovered/Resolved]
  - Inappropriate schedule of drug administration [Unknown]
